FAERS Safety Report 4555697-2 (Version None)
Quarter: 2005Q1

REPORT INFORMATION
  Report Type: 
  Country: None (occurrence: None)
  Receive Date: 20050112
  Receipt Date: 20040212
  Transmission Date: 20050727
  Serious: Yes (Other)
  Sender: FDA-Public Use
  Company Number: 200412634BWH

PATIENT
  Age: 56 Year
  Sex: Female
  Weight: 68.0396 kg

DRUGS (3)
  1. CIPROFLOXACIN HYDROCHLORIDE [Suspect]
     Indication: CYSTITIS
     Dosage: ONCE, ORAL
     Route: 048
     Dates: start: 20031201
  2. CENTRUM [Concomitant]
  3. ZOMIG [Concomitant]

REACTIONS (5)
  - BLOOD PRESSURE SYSTOLIC INCREASED [None]
  - DYSPHAGIA [None]
  - HYPERSENSITIVITY [None]
  - PRURITUS GENERALISED [None]
  - SWELLING FACE [None]
